FAERS Safety Report 6942247-6 (Version None)
Quarter: 2010Q3

REPORT INFORMATION
  Report Type: 
  Country: None (occurrence: None)
  Receive Date: 20100823
  Receipt Date: 20100810
  Transmission Date: 20110219
  Serious: Yes (Death, Other)
  Sender: FDA-Public Use
  Company Number: 010685

PATIENT
  Sex: 0

DRUGS (8)
  1. BUSULFEX [Suspect]
     Indication: STEM CELL TRANSPLANT
     Dosage: 0.8 MG/KG, BID, INTRAVENOUS
     Route: 042
  2. FLUDARABINE PHOSPHATE [Concomitant]
  3. TACROLIMUS [Concomitant]
  4. SIROLIMUS (RAPAMUNE) [Concomitant]
  5. METHOTREXATE [Concomitant]
  6. FILGRASTIM (FILGRASTIM) [Concomitant]
  7. GANCICLOVIR [Concomitant]
  8. VALGANCICLOVIR HCL [Concomitant]

REACTIONS (3)
  - ACUTE GRAFT VERSUS HOST DISEASE [None]
  - CHRONIC GRAFT VERSUS HOST DISEASE [None]
  - HAEMATOLOGICAL MALIGNANCY [None]
